FAERS Safety Report 8212421-X (Version None)
Quarter: 2012Q1

REPORT INFORMATION
  Report Type: 
  Country: None (occurrence: None)
  Receive Date: 20120315
  Receipt Date: 20120307
  Transmission Date: 20120608
  Serious: Yes (Other)
  Sender: FDA-Public Use
  Company Number: US-BAYER-201033458NA

PATIENT
  Sex: Female
  Weight: 136.5 kg

DRUGS (1)
  1. YAZ [Suspect]
     Dosage: UNK
     Route: 048
     Dates: start: 20080101, end: 20090101

REACTIONS (9)
  - CHOLECYSTECTOMY [None]
  - ABDOMINAL DISTENSION [None]
  - DYSPEPSIA [None]
  - CONSTIPATION [None]
  - FLATULENCE [None]
  - DIARRHOEA [None]
  - SCAR [None]
  - DEPRESSION [None]
  - ANXIETY [None]
